FAERS Safety Report 4395951-0 (Version None)
Quarter: 2004Q3

REPORT INFORMATION
  Report Type: 
  Country: None (occurrence: None)
  Receive Date: 20040707
  Receipt Date: 20040628
  Transmission Date: 20050211
  Serious: Yes (Other)
  Sender: FDA-Public Use
  Company Number: 2004212940AU

PATIENT
  Age: 68 Year
  Sex: Male
  Weight: 60 kg

DRUGS (10)
  1. CABERGOLINE [Suspect]
     Indication: PARKINSON'S DISEASE
     Dosage: 2 MG, QD, ORAL
     Route: 048
     Dates: start: 20010701
  2. RULIDE (ROXITHROMYCIN) [Suspect]
     Dosage: 300 MG, QD, ORAL
     Route: 048
     Dates: start: 20020903
  3. MYCIN [Concomitant]
  4. SINEMET [Concomitant]
  5. SINEMET CR [Concomitant]
  6. ARTANE [Concomitant]
  7. ELDEPRYL [Concomitant]
  8. AMITRIPTYLINE HYDROCHLORIDE [Concomitant]
  9. DOLOBID [Concomitant]
  10. TASMAR (TOLCAPONE) [Concomitant]

REACTIONS (1)
  - PARALYSIS [None]
